FAERS Safety Report 5721344-7 (Version None)
Quarter: 2008Q2

REPORT INFORMATION
  Report Type: 
  Country: None (occurrence: None)
  Receive Date: 20080428
  Receipt Date: 20080428
  Transmission Date: 20081010
  Serious: Yes (Other)
  Sender: FDA-Public Use
  Company Number: None

PATIENT
  Age: 67 Year
  Sex: Female
  Weight: 65.7716 kg

DRUGS (2)
  1. SIMVASTATIN [Suspect]
     Indication: LOW DENSITY LIPOPROTEIN INCREASED
     Dosage: ONE TABLET 80 MG ONCE DAILY PO
     Route: 048
     Dates: start: 20080401, end: 20080413
  2. RED YEAST RICE 2 CAPSULES = 1,200 MG REXALL [Suspect]
     Indication: LOW DENSITY LIPOPROTEIN INCREASED
     Dosage: TWO CAPSULES = 1, 200 MG TWICE DAILY PO
     Route: 048
     Dates: start: 20080414, end: 20080426

REACTIONS (2)
  - BACK PAIN [None]
  - PAIN IN EXTREMITY [None]
